FAERS Safety Report 8432061-7 (Version None)
Quarter: 2012Q2

REPORT INFORMATION
  Report Type: 
  Country: None (occurrence: None)
  Receive Date: 20120606
  Receipt Date: 20120523
  Transmission Date: 20120825
  Serious: Yes (Hospitalization)
  Sender: FDA-Public Use
  Company Number: DSJ-2012-05655

PATIENT
  Age: 69 Year
  Sex: Female

DRUGS (9)
  1. BENICAR [Suspect]
     Indication: HYPERTENSION
     Dosage: 20 MG (20 MG, 1 IN 1 D), PER ORAL   40 MG (40 MG, 1 IN 1 D), PER ORAL
     Route: 048
     Dates: start: 20120401
  2. BENICAR [Suspect]
     Indication: HYPERTENSION
     Dosage: 20 MG (20 MG, 1 IN 1 D), PER ORAL   40 MG (40 MG, 1 IN 1 D), PER ORAL
     Route: 048
     Dates: start: 20090101, end: 20120401
  3. AMIODARONE HCL [Suspect]
     Indication: ATRIAL FIBRILLATION
     Route: 048
     Dates: start: 20120304, end: 20120304
  4. SIMVASTATIN [Concomitant]
  5. PROPAFENONE HYDROCHLORIDE [Suspect]
     Dosage: 300 MG, PER ORAL
     Route: 048
     Dates: start: 20120304
  6. MEDICINE (NAME UNKNOWN) [Suspect]
     Route: 048
     Dates: start: 20120305
  7. METFORMIN HCL [Concomitant]
  8. INDAPAMIDE [Concomitant]
  9. ATENOLOL [Concomitant]

REACTIONS (9)
  - BLOOD PRESSURE SYSTOLIC INCREASED [None]
  - ATRIAL FIBRILLATION [None]
  - AORTIC ANEURYSM [None]
  - DRUG INEFFECTIVE [None]
  - BRADYCARDIA [None]
  - BLOOD PRESSURE FLUCTUATION [None]
  - HYPOTENSION [None]
  - CARDIAC VENTRICULAR DISORDER [None]
  - TACHYCARDIA [None]
